FAERS Safety Report 16468761 (Version 2)
Quarter: 2019Q2

REPORT INFORMATION
  Report Type: Spontaneous
  Country: MY (occurrence: MY)
  Receive Date: 20190624
  Receipt Date: 20190626
  Transmission Date: 20190711
  Serious: Yes (Disabling)
  Sender: FDA-Public Use
  Company Number: MY-PFIZER INC-2019263578

PATIENT
  Age: 23 Year
  Sex: Male

DRUGS (1)
  1. DILANTIN [Suspect]
     Active Substance: PHENYTOIN
     Indication: EPILEPSY
     Dosage: 300 MG, UNK (1 DAY)
     Route: 048

REACTIONS (1)
  - Gingival hypertrophy [Unknown]
